FAERS Safety Report 12508254 (Version 1)
Quarter: 2016Q2

REPORT INFORMATION
  Report Type: Spontaneous
  Country: US (occurrence: None)
  Receive Date: 20160628
  Receipt Date: 20160628
  Transmission Date: 20160815
  Serious: No
  Sender: FDA-Public Use
  Company Number: None

PATIENT
  Age: 67 Year
  Sex: Male

DRUGS (1)
  1. TACROLIMUS CAP 0.5MG [Suspect]
     Active Substance: TACROLIMUS
     Dosage: 0.5 TAKE 2 CAPSUL ORAL
     Route: 048
     Dates: start: 20160613

REACTIONS (2)
  - Oedema peripheral [None]
  - Peripheral swelling [None]

NARRATIVE: CASE EVENT DATE: 20160623
